FAERS Safety Report 7294985-6 (Version None)
Quarter: 2011Q1

REPORT INFORMATION
  Report Type: 
  Country: None (occurrence: None)
  Receive Date: 20110216
  Receipt Date: 20110210
  Transmission Date: 20110831
  Serious: Yes (Hospitalization)
  Sender: FDA-Public Use
  Company Number: US-JNJFOC-20110203579

PATIENT
  Sex: Male
  Weight: 99.79 kg

DRUGS (4)
  1. HCT [Concomitant]
     Indication: HYPERTENSION
     Dosage: 40-25MGS TABLETS
     Route: 048
  2. FENTANYL-100 [Suspect]
     Indication: ARTHRITIS
     Route: 062
  3. AMLODIPINE [Concomitant]
     Indication: HYPERTENSION
     Route: 048
  4. FENTANYL-100 [Suspect]
     Indication: BACK PAIN
     Route: 062

REACTIONS (3)
  - ARTHRITIS [None]
  - PRODUCT QUALITY ISSUE [None]
  - WITHDRAWAL SYNDROME [None]
